FAERS Safety Report 8511269 (Version 2)
Quarter: 2014Q2

REPORT INFORMATION
  Report Type: Spontaneous
  Country: US (occurrence: US)
  Receive Date: 20120413
  Receipt Date: 20140620
  Transmission Date: 20141212
  Serious: No
  Sender: FDA-Public Use
  Company Number: US-ASTRAZENECA-2011SE59407

PATIENT
  Age: 59 Year
  Sex: Female
  Weight: 52.2 kg

DRUGS (14)
  1. NEXIUM [Suspect]
     Indication: GASTROOESOPHAGEAL REFLUX DISEASE
     Route: 048
  2. NEXIUM [Suspect]
     Indication: HIATUS HERNIA
     Route: 048
  3. NEXIUM [Suspect]
     Indication: ABDOMINAL DISCOMFORT
     Route: 048
  4. NEXIUM [Suspect]
     Indication: GASTROOESOPHAGEAL REFLUX DISEASE
     Route: 048
     Dates: start: 2004
  5. NEXIUM [Suspect]
     Indication: HIATUS HERNIA
     Route: 048
     Dates: start: 2004
  6. NEXIUM [Suspect]
     Indication: ABDOMINAL DISCOMFORT
     Route: 048
     Dates: start: 2004
  7. CRESTOR [Suspect]
     Indication: BLOOD CHOLESTEROL INCREASED
     Route: 048
  8. CRESTOR [Suspect]
     Indication: BLOOD CHOLESTEROL INCREASED
     Route: 048
     Dates: start: 2008
  9. ROXYCODONE [Concomitant]
     Indication: PAIN
     Route: 048
  10. IRON [Concomitant]
     Indication: ANAEMIA
     Dosage: UNK
     Route: 048
  11. XALATAN [Concomitant]
     Indication: GLAUCOMA
     Dosage: DAILY
     Route: 050
  12. ZANTAC [Concomitant]
     Indication: GASTROOESOPHAGEAL REFLUX DISEASE
     Dosage: 1 TAB BID
     Route: 048
  13. PREMARIN [Concomitant]
     Indication: HYSTERECTOMY
     Dosage: 1 TAB DAILY
     Route: 048
  14. CELEXA [Concomitant]
     Indication: DEPRESSION
     Route: 048

REACTIONS (7)
  - Migraine [Unknown]
  - Fibromyalgia [Unknown]
  - Back pain [Unknown]
  - Arthritis [Unknown]
  - Anaemia [Unknown]
  - Weight fluctuation [Unknown]
  - Intentional product misuse [Unknown]
